FAERS Safety Report 5876876-8 (Version None)
Quarter: 2008Q3

REPORT INFORMATION
  Report Type: 
  Country: None (occurrence: None)
  Receive Date: 20080909
  Receipt Date: 20080909
  Transmission Date: 20090109
  Serious: Yes (Other)
  Sender: FDA-Public Use
  Company Number: None

PATIENT
  Sex: Female

DRUGS (1)
  1. ISOFACE (ISOTRETINOIN,PROCAPS) [Suspect]
     Dosage: 10 MG
     Dates: start: 20080615, end: 20080723

REACTIONS (3)
  - DRUG EXPOSURE DURING PREGNANCY [None]
  - SELF-MEDICATION [None]
  - UNINTENDED PREGNANCY [None]
